FAERS Safety Report 9007363 (Version 1)
Quarter: 2013Q1

REPORT INFORMATION
  Report Type: Spontaneous
  Country: IT (occurrence: IT)
  Receive Date: 20130110
  Receipt Date: 20130110
  Transmission Date: 20140127
  Serious: Yes (Other)
  Sender: FDA-Public Use
  Company Number: IT-TEVA-379171ISR

PATIENT
  Sex: Female

DRUGS (2)
  1. LORATADINA [Suspect]
  2. DELORAZEPAM [Suspect]

REACTIONS (1)
  - Sopor [Recovering/Resolving]
